FAERS Safety Report 17246198 (Version 8)
Quarter: 2021Q3

REPORT INFORMATION
  Report Type: Spontaneous
  Country: US (occurrence: US)
  Receive Date: 20200108
  Receipt Date: 20210825
  Transmission Date: 20211014
  Serious: Yes (Hospitalization, Other)
  Sender: FDA-Public Use
  Company Number: US-GILEAD-2020-0445085

PATIENT
  Age: 55 Year
  Sex: Male
  Weight: 73.65 kg

DRUGS (69)
  1. ATRIPLA [Suspect]
     Active Substance: EFAVIRENZ\EMTRICITABINE\TENOFOVIR DISOPROXIL FUMARATE
     Dosage: UNK
     Route: 048
     Dates: start: 20130909, end: 20131125
  2. PAXIL [PIROXICAM] [Concomitant]
     Active Substance: PIROXICAM
  3. GABAPENTIN. [Concomitant]
     Active Substance: GABAPENTIN
  4. ONDANSETRON [Concomitant]
     Active Substance: ONDANSETRON
  5. TRAMADOL. [Concomitant]
     Active Substance: TRAMADOL
  6. ATRIPLA [Suspect]
     Active Substance: EFAVIRENZ\EMTRICITABINE\TENOFOVIR DISOPROXIL FUMARATE
     Dosage: UNK
     Route: 048
     Dates: start: 20060815, end: 20131101
  7. TRUVADA [Suspect]
     Active Substance: EMTRICITABINE\TENOFOVIR DISOPROXIL FUMARATE
     Indication: HIV INFECTION
     Dosage: UNK
     Route: 065
     Dates: start: 20140729, end: 20150325
  8. VANCOMYCIN [Concomitant]
     Active Substance: VANCOMYCIN
  9. KALETRA [Concomitant]
     Active Substance: LOPINAVIR\RITONAVIR
  10. CLONAZEPAM. [Concomitant]
     Active Substance: CLONAZEPAM
  11. LISINOPRIL. [Concomitant]
     Active Substance: LISINOPRIL
  12. HYDRALAZINE [Concomitant]
     Active Substance: HYDRALAZINE HYDROCHLORIDE
  13. PANCRELIPASE. [Concomitant]
     Active Substance: PANCRELIPASE
  14. NALOXONE [Concomitant]
     Active Substance: NALOXONE
  15. MARINOL [Concomitant]
     Active Substance: DRONABINOL
  16. MORPHINE [Concomitant]
     Active Substance: MORPHINE
  17. CAMPHOR [Concomitant]
     Active Substance: CAMPHOR
  18. COMPLERA [Suspect]
     Active Substance: EMTRICITABINE\RILPIVIRINE HYDROCHLORIDE\TENOFOVIR DISOPROXIL FUMARATE
     Dosage: UNK
     Route: 048
     Dates: start: 20140604, end: 20140729
  19. AMOXICILLIN. [Concomitant]
     Active Substance: AMOXICILLIN
  20. OMEPRAZOLE. [Concomitant]
     Active Substance: OMEPRAZOLE
  21. VANCOMYCIN [Concomitant]
     Active Substance: VANCOMYCIN
  22. SPIRONOLACTONE. [Concomitant]
     Active Substance: SPIRONOLACTONE
  23. BISACODYL. [Concomitant]
     Active Substance: BISACODYL
  24. ZITHROMYCIN [Concomitant]
     Active Substance: AZITHROMYCIN ANHYDROUS
  25. SEROQUEL [Concomitant]
     Active Substance: QUETIAPINE FUMARATE
  26. HYDROCODONE BITARTRATE AND ACETAMINOPHEN [Concomitant]
     Active Substance: ACETAMINOPHEN\HYDROCODONE BITARTRATE
  27. FOLIC ACID. [Concomitant]
     Active Substance: FOLIC ACID
  28. MAGNESIUM OXIDE. [Concomitant]
     Active Substance: MAGNESIUM OXIDE
  29. FLUCONAZOLE. [Concomitant]
     Active Substance: FLUCONAZOLE
  30. EPZICOM [Concomitant]
     Active Substance: ABACAVIR SULFATE\LAMIVUDINE
  31. TIVICAY [Concomitant]
     Active Substance: DOLUTEGRAVIR SODIUM
  32. ATIVAN [Concomitant]
     Active Substance: LORAZEPAM
  33. GUAIFENESIN. [Concomitant]
     Active Substance: GUAIFENESIN
  34. HYDROMORPHONE [Concomitant]
     Active Substance: HYDROMORPHONE
  35. XIFAXAN [Concomitant]
     Active Substance: RIFAXIMIN
  36. ESZOPICLONE. [Concomitant]
     Active Substance: ESZOPICLONE
  37. DEXTROMETHORPHAN?GUAIFENESIN [Concomitant]
     Active Substance: DEXTROMETHORPHAN\GUAIFENESIN
  38. DOCUSATE [Concomitant]
     Active Substance: DOCUSATE
  39. HARVONI [Concomitant]
     Active Substance: LEDIPASVIR\SOFOSBUVIR
  40. TRIUMEQ [Concomitant]
     Active Substance: ABACAVIR SULFATE\DOLUTEGRAVIR SODIUM\LAMIVUDINE
  41. SENNOSIDES. [Concomitant]
     Active Substance: SENNOSIDES
  42. LOPERAMIDE [Concomitant]
     Active Substance: LOPERAMIDE
  43. TRIAMCINOLONE ACETONIDE. [Concomitant]
     Active Substance: TRIAMCINOLONE ACETONIDE
  44. ATRIPLA [Suspect]
     Active Substance: EFAVIRENZ\EMTRICITABINE\TENOFOVIR DISOPROXIL FUMARATE
     Indication: HIV INFECTION
     Dosage: UNK
     Route: 048
     Dates: start: 200707, end: 201311
  45. ATRIPLA [Suspect]
     Active Substance: EFAVIRENZ\EMTRICITABINE\TENOFOVIR DISOPROXIL FUMARATE
     Dosage: UNK
     Route: 048
     Dates: start: 20060808, end: 20131125
  46. ATRIPLA [Suspect]
     Active Substance: EFAVIRENZ\EMTRICITABINE\TENOFOVIR DISOPROXIL FUMARATE
     Dosage: UNK
     Route: 048
     Dates: start: 20060808, end: 201308
  47. COMPLERA [Suspect]
     Active Substance: EMTRICITABINE\RILPIVIRINE HYDROCHLORIDE\TENOFOVIR DISOPROXIL FUMARATE
     Dosage: UNK
     Route: 048
     Dates: start: 20131125, end: 20140604
  48. ACETAMINOPHEN. [Concomitant]
     Active Substance: ACETAMINOPHEN
  49. BACTRIM [Concomitant]
     Active Substance: SULFAMETHOXAZOLE\TRIMETHOPRIM
  50. ZIAGEN [Concomitant]
     Active Substance: ABACAVIR SULFATE
  51. METOPROLOL. [Concomitant]
     Active Substance: METOPROLOL
  52. ZOLOFT [Concomitant]
     Active Substance: SERTRALINE HYDROCHLORIDE
  53. RIFADIN [Concomitant]
     Active Substance: RIFAMPIN
  54. SILDENAFIL. [Concomitant]
     Active Substance: SILDENAFIL
  55. ROXICODONE [Concomitant]
     Active Substance: OXYCODONE HYDROCHLORIDE
  56. FERROUS GLUCONATE [Concomitant]
     Active Substance: FERROUS GLUCONATE
  57. EMTRIVA [Concomitant]
     Active Substance: EMTRICITABINE
  58. COMPLERA [Suspect]
     Active Substance: EMTRICITABINE\RILPIVIRINE HYDROCHLORIDE\TENOFOVIR DISOPROXIL FUMARATE
     Indication: HIV INFECTION
     Dosage: UNK
     Route: 048
     Dates: start: 20131209, end: 201602
  59. COMPLERA [Suspect]
     Active Substance: EMTRICITABINE\RILPIVIRINE HYDROCHLORIDE\TENOFOVIR DISOPROXIL FUMARATE
     Dosage: UNK
     Route: 048
     Dates: start: 20131125, end: 20140729
  60. AMITRIPTYLINE [Concomitant]
     Active Substance: AMITRIPTYLINE
  61. PREDNISONE. [Concomitant]
     Active Substance: PREDNISONE
  62. WARFARIN [Concomitant]
     Active Substance: WARFARIN
  63. IBUPROFEN. [Concomitant]
     Active Substance: IBUPROFEN
  64. CLINDAMYCIN. [Concomitant]
     Active Substance: CLINDAMYCIN
  65. CETIRIZINE [Concomitant]
     Active Substance: CETIRIZINE HYDROCHLORIDE
  66. DESIPRAMINE [Concomitant]
     Active Substance: DESIPRAMINE
  67. PROCHLORPERAZINE. [Concomitant]
     Active Substance: PROCHLORPERAZINE
  68. CYANOCOBALAMINE [Concomitant]
     Active Substance: CYANOCOBALAMIN
  69. HYDROXYZINE [Concomitant]
     Active Substance: HYDROXYZINE HYDROCHLORIDE

REACTIONS (13)
  - Anhedonia [Unknown]
  - Anxiety [Unknown]
  - Pain [Unknown]
  - Chronic kidney disease [Not Recovered/Not Resolved]
  - Renal failure [Unknown]
  - Tooth loss [Not Recovered/Not Resolved]
  - Chronic kidney disease [Not Recovered/Not Resolved]
  - End stage renal disease [Not Recovered/Not Resolved]
  - Bone density decreased [Unknown]
  - Emotional distress [Unknown]
  - Acute kidney injury [Recovered/Resolved]
  - Economic problem [Unknown]
  - Tooth loss [Not Recovered/Not Resolved]

NARRATIVE: CASE EVENT DATE: 2015
